FAERS Safety Report 5955527-8 (Version None)
Quarter: 2008Q4

REPORT INFORMATION
  Report Type: 
  Country: None (occurrence: None)
  Receive Date: 20081117
  Receipt Date: 20081105
  Transmission Date: 20090506
  Serious: Yes (Hospitalization, Other)
  Sender: FDA-Public Use
  Company Number: US-PFIZER INC-2005023279

PATIENT
  Sex: Female
  Weight: 77.1 kg

DRUGS (2)
  1. CELEBREX [Suspect]
     Indication: ARTHRITIS
     Route: 048
  2. DETROL LA [Suspect]

REACTIONS (6)
  - BLADDER PROLAPSE [None]
  - CONSTIPATION [None]
  - HEART RATE IRREGULAR [None]
  - HYPERCHLORHYDRIA [None]
  - HYSTERECTOMY [None]
  - RECTAL PROLAPSE [None]
